FAERS Safety Report 5737457-X (Version None)
Quarter: 2008Q2

REPORT INFORMATION
  Report Type: 
  Country: None (occurrence: None)
  Receive Date: 20080514
  Receipt Date: 20080321
  Transmission Date: 20081010
  Serious: No
  Sender: FDA-Public Use
  Company Number: US-BRISTOL-MYERS SQUIBB COMPANY-14123277

PATIENT
  Sex: Female

DRUGS (2)
  1. IXEMPRA KIT [Suspect]
     Indication: BREAST CANCER METASTATIC
     Dosage: 4-5 CYCLES
  2. HISTAMINE ANTAGONIST [Concomitant]
     Indication: PREMEDICATION

REACTIONS (1)
  - URINARY TRACT INFECTION [None]
